FAERS Safety Report 7809994-5 (Version None)
Quarter: 2011Q4

REPORT INFORMATION
  Report Type: 
  Country: None (occurrence: None)
  Receive Date: 20111012
  Receipt Date: 20111010
  Transmission Date: 20120403
  Serious: Yes (Other)
  Sender: FDA-Public Use
  Company Number: US-PFIZER INC-2011241638

PATIENT
  Sex: Male
  Weight: 97.506 kg

DRUGS (8)
  1. PROSCAR [Concomitant]
     Indication: PROSTATOMEGALY
     Dosage: UNK
  2. BYSTOLIC [Concomitant]
     Indication: HYPERTENSION
     Dosage: UNK
  3. METAMUCIL-2 [Concomitant]
     Dosage: UNK
  4. LIPITOR [Suspect]
     Dosage: UNK
     Route: 048
  5. LIPITOR [Suspect]
     Indication: BLOOD CHOLESTEROL INCREASED
     Dosage: 20 MG, 1X/DAY
     Route: 048
     Dates: start: 20000101
  6. PROCARDIA [Concomitant]
     Indication: HYPERTENSION
     Dosage: 90 MG, UNK
  7. GUAIFENESIN [Concomitant]
     Dosage: UNK
  8. ACETYLSALICYLIC ACID [Concomitant]
     Dosage: 81 MG, UNK

REACTIONS (6)
  - PAIN IN EXTREMITY [None]
  - POLLAKIURIA [None]
  - RENAL DISORDER [None]
  - MUSCULAR WEAKNESS [None]
  - SOMNOLENCE [None]
  - ASTHENIA [None]
